FAERS Safety Report 10507696 (Version 1)
Quarter: 2014Q3

REPORT INFORMATION
  Report Type: Spontaneous
  Country: US (occurrence: None)
  Receive Date: 20140915
  Receipt Date: 20140915
  Transmission Date: 20150326
  Serious: Yes (Other)
  Sender: FDA-Public Use
  Company Number: 2014-US-006607

PATIENT
  Age: 27 Year
  Sex: Female

DRUGS (2)
  1. XYREM [Suspect]
     Active Substance: SODIUM OXYBATE
     Indication: CATAPLEXY
     Route: 048
     Dates: start: 201404, end: 2014
  2. XYREM [Suspect]
     Active Substance: SODIUM OXYBATE
     Indication: NARCOLEPSY
     Route: 048
     Dates: start: 201404, end: 2014

REACTIONS (9)
  - Condition aggravated [None]
  - Paraesthesia [None]
  - Gastrointestinal pain [None]
  - Insomnia [None]
  - Abnormal faeces [None]
  - Sleep apnoea syndrome [None]
  - Paraesthesia oral [None]
  - Dizziness [None]
  - Cataplexy [None]

NARRATIVE: CASE EVENT DATE: 20140525
